FAERS Safety Report 21627093 (Version 1)
Quarter: 2022Q4

REPORT INFORMATION
  Report Type: Spontaneous
  Country: US (occurrence: US)
  Receive Date: 20221122
  Receipt Date: 20221122
  Transmission Date: 20230113
  Serious: Yes (Hospitalization, Other)
  Sender: FDA-Public Use
  Company Number: US-ABBVIE-4208887

PATIENT
  Sex: Female
  Weight: 59 kg

DRUGS (4)
  1. HUMIRA [Suspect]
     Active Substance: ADALIMUMAB
     Indication: Product used for unknown indication
     Route: 058
  2. XELJANZ XR [Suspect]
     Active Substance: TOFACITINIB CITRATE
     Indication: Rheumatoid arthritis
     Dosage: 11MG TABLET ONCE A DAY
     Dates: start: 2012
  3. LISINOPRIL [Concomitant]
     Active Substance: LISINOPRIL
     Indication: Hypertension
     Dosage: 5MG ONCE A DAY
     Dates: start: 202209
  4. METHOTREXATE [Suspect]
     Active Substance: METHOTREXATE
     Indication: Rheumatoid arthritis
     Route: 065

REACTIONS (11)
  - Loss of consciousness [Unknown]
  - Punctate keratitis [Recovered/Resolved]
  - Hypertension [Unknown]
  - Bacterial gingivitis [Unknown]
  - Skin cancer [Recovering/Resolving]
  - Tooth loss [Unknown]
  - Lymphadenopathy [Unknown]
  - Infection [Unknown]
  - Skin cancer [Recovered/Resolved]
  - Drug tolerance [Unknown]
  - Skin cancer [Unknown]

NARRATIVE: CASE EVENT DATE: 20220101
